FAERS Safety Report 8132541-8 (Version None)
Quarter: 2012Q1

REPORT INFORMATION
  Report Type: 
  Country: None (occurrence: None)
  Receive Date: 20120213
  Receipt Date: 20120208
  Transmission Date: 20120608
  Serious: Yes (Other)
  Sender: FDA-Public Use
  Company Number: US-PFIZER INC-2012036926

PATIENT
  Sex: Female
  Weight: 52 kg

DRUGS (2)
  1. NARDIL [Suspect]
     Indication: DEPRESSION
     Dosage: 15 MG, 3X/DAY
     Route: 048
     Dates: start: 20040101
  2. LIDOCAINE [Concomitant]
     Dosage: UNK

REACTIONS (7)
  - NAUSEA [None]
  - MALAISE [None]
  - HYPERTENSION [None]
  - CONVULSION [None]
  - APHAGIA [None]
  - HEADACHE [None]
  - MOVEMENT DISORDER [None]
